FAERS Safety Report 21364455 (Version 1)
Quarter: 2022Q3

REPORT INFORMATION
  Report Type: Spontaneous
  Country: US (occurrence: US)
  Receive Date: 20220922
  Receipt Date: 20220922
  Transmission Date: 20221027
  Serious: Yes (Other)
  Sender: FDA-Public Use
  Company Number: US-PFIZER INC-PV202200067869

PATIENT
  Age: 81 Year
  Sex: Female

DRUGS (2)
  1. XELJANZ XR [Suspect]
     Active Substance: TOFACITINIB CITRATE
     Dosage: 11 MG, 1X/DAY
     Route: 048
     Dates: end: 202108
  2. XELJANZ XR [Suspect]
     Active Substance: TOFACITINIB CITRATE
     Dosage: 11 MG, 1X/DAY (1 BY MOUTH EVERY DAY)
     Route: 048
     Dates: start: 202206

REACTIONS (5)
  - Polyarthritis [Unknown]
  - Rheumatoid arthritis [Unknown]
  - Intervertebral disc degeneration [Recovered/Resolved]
  - Disease recurrence [Unknown]
  - Facet joint syndrome [Recovered/Resolved]
